FAERS Safety Report 23459014 (Version 5)
Quarter: 2024Q1

REPORT INFORMATION
  Report Type: Report from Study
  Country: NL (occurrence: NL)
  Receive Date: 20240131
  Receipt Date: 20240311
  Transmission Date: 20240410
  Serious: Yes (Hospitalization)
  Sender: FDA-Public Use
  Company Number: NL-ABBVIE-5601029

PATIENT
  Age: 80 Year
  Sex: Female

DRUGS (15)
  1. CARBIDOPA\LEVODOPA [Suspect]
     Active Substance: CARBIDOPA\LEVODOPA
     Indication: Parkinson^s disease
     Dosage: MD: 7.0ML, CD: 2.5 ML/H, ED: 2.0 ML, REMAINS AT 16 HOURS
     Route: 050
     Dates: start: 20240205, end: 20240227
  2. CARBIDOPA\LEVODOPA [Suspect]
     Active Substance: CARBIDOPA\LEVODOPA
     Dosage: MD: 4.0ML, CD: 1.4ML/H, ED: 1.0ML; REMAINS AT 16 HOURS
     Route: 050
     Dates: start: 20240109, end: 20240110
  3. CARBIDOPA\LEVODOPA [Suspect]
     Active Substance: CARBIDOPA\LEVODOPA
     Dosage: MD: 7.0ML, CD: 2.5 ML/H, ED: 2.0 ML?REMAINS AT 16 HOURS?FIRST ADMIN DATE  JAN 2024
     Route: 050
  4. CARBIDOPA\LEVODOPA [Suspect]
     Active Substance: CARBIDOPA\LEVODOPA
     Dosage: MD: 7.0ML, CD: 2.5 ML/H, ED: 2.0 ML?REMAINS AT 16 HOUR
     Route: 050
     Dates: start: 20240118, end: 20240126
  5. CARBIDOPA\LEVODOPA [Suspect]
     Active Substance: CARBIDOPA\LEVODOPA
     Dosage: MD: 7.0ML, CD: 2.2 ML/H, ED: 2.0 ML?REMAINS AT 16 HOUR
     Route: 050
     Dates: start: 20240117, end: 20240118
  6. CARBIDOPA\LEVODOPA [Suspect]
     Active Substance: CARBIDOPA\LEVODOPA
     Dosage: MD: 7.0ML, CD: 2.5 ML/H, ED: 2.0 ML, REMAINS AT 16 HOURS
     Route: 050
     Dates: start: 20240301
  7. CARBIDOPA\LEVODOPA [Suspect]
     Active Substance: CARBIDOPA\LEVODOPA
     Dosage: MD: 4.0ML, CD: 1.4ML/H, ED: 1.0ML
     Route: 050
     Dates: start: 20240110, end: 20240117
  8. CARBIDOPA\LEVODOPA [Suspect]
     Active Substance: CARBIDOPA\LEVODOPA
     Dosage: MD: 7.0ML, CD: 2.5 ML/H, ED: 2.0 ML, REMAINS AT 16 HOURS
     Route: 050
     Dates: start: 20240126, end: 20240205
  9. SINEMET [Concomitant]
     Active Substance: CARBIDOPA\LEVODOPA
     Indication: Parkinson^s disease
     Dosage: TIME INTERVAL: 0.33333333 DAYS: FORM STRENGTH: 125 MG?1. DOSAGE FORM
     Route: 048
     Dates: start: 20090801, end: 20240115
  10. SINEMET [Concomitant]
     Active Substance: CARBIDOPA\LEVODOPA
     Indication: Parkinson^s disease
     Dosage: FORM STRENGTH: 250 MG?FIRST ADMIN DATE:2024
     Route: 048
  11. ROPINIROLE [Concomitant]
     Active Substance: ROPINIROLE
     Indication: Parkinson^s disease
     Route: 048
     Dates: start: 20090801
  12. ROPINIROLE [Concomitant]
     Active Substance: ROPINIROLE
     Indication: Parkinson^s disease
     Route: 048
  13. BENSERAZIDE HYDROCHLORIDE\LEVODOPA [Concomitant]
     Active Substance: BENSERAZIDE HYDROCHLORIDE\LEVODOPA
     Indication: Parkinson^s disease
     Dosage: FORM STRENGTH: 125 MG
     Route: 048
     Dates: start: 20090801, end: 20240115
  14. DOMPERIDONE [Concomitant]
     Active Substance: DOMPERIDONE
     Indication: Orthostatic hypotension
     Dosage: TIME INTERVAL: 0.33333333 DAYS: FORM STRENGTH: 10 MG
     Dates: start: 20090801
  15. ENTACAPONE [Concomitant]
     Active Substance: ENTACAPONE
     Indication: Parkinson^s disease
     Dosage: TIME INTERVAL: 0.33333333 DAYS: FORM STRENGTH: 200 MG
     Route: 048
     Dates: start: 20090801, end: 20240115

REACTIONS (26)
  - Oxygen saturation decreased [Not Recovered/Not Resolved]
  - Cardiac failure [Not Recovered/Not Resolved]
  - Device issue [Unknown]
  - Therapeutic product effect incomplete [Recovered/Resolved]
  - Decreased appetite [Not Recovered/Not Resolved]
  - Device occlusion [Recovered/Resolved]
  - Cognitive disorder [Not Recovered/Not Resolved]
  - Device dislocation [Not Recovered/Not Resolved]
  - Fall [Recovered/Resolved]
  - Dyskinesia [Recovered/Resolved]
  - Off label use [Not Recovered/Not Resolved]
  - Tension [Not Recovered/Not Resolved]
  - Communication disorder [Not Recovered/Not Resolved]
  - Stoma site pain [Not Recovered/Not Resolved]
  - Freezing phenomenon [Not Recovered/Not Resolved]
  - Malaise [Not Recovered/Not Resolved]
  - On and off phenomenon [Not Recovered/Not Resolved]
  - Memory impairment [Not Recovered/Not Resolved]
  - Stoma site discomfort [Not Recovered/Not Resolved]
  - Fall [Recovered/Resolved]
  - Nocturia [Not Recovered/Not Resolved]
  - Gait disturbance [Not Recovered/Not Resolved]
  - Fall [Recovered/Resolved]
  - Fall [Recovered/Resolved]
  - Obsessive-compulsive disorder [Not Recovered/Not Resolved]
  - Hallucination [Not Recovered/Not Resolved]

NARRATIVE: CASE EVENT DATE: 20240101
